FAERS Safety Report 21372654 (Version 2)
Quarter: 2022Q4

REPORT INFORMATION
  Report Type: Spontaneous
  Country: US (occurrence: US)
  Receive Date: 20220924
  Receipt Date: 20221004
  Transmission Date: 20230113
  Serious: Yes (Other)
  Sender: FDA-Public Use
  Company Number: US-LUPIN PHARMACEUTICALS INC.-2022-11284

PATIENT
  Age: 28 Year
  Sex: Male
  Weight: 90.703 kg

DRUGS (1)
  1. LISINOPRIL [Suspect]
     Active Substance: LISINOPRIL
     Indication: Hypertension
     Dosage: UNK
     Route: 065
     Dates: start: 20220820, end: 20220823

REACTIONS (7)
  - Angina pectoris [Recovered/Resolved]
  - Chest pain [Recovered/Resolved]
  - Diarrhoea [Recovered/Resolved]
  - Myalgia [Recovered/Resolved]
  - Decreased appetite [Recovered/Resolved]
  - Headache [Recovered/Resolved]
  - Feeling abnormal [Recovered/Resolved]

NARRATIVE: CASE EVENT DATE: 20220822
